FAERS Safety Report 8460302-9 (Version None)
Quarter: 2012Q2

REPORT INFORMATION
  Report Type: 
  Country: None (occurrence: None)
  Receive Date: 20120622
  Receipt Date: 20120613
  Transmission Date: 20120825
  Serious: Yes (Hospitalization, Disabling)
  Sender: FDA-Public Use
  Company Number: US-ACTELION-A-NJ2012-62851

PATIENT

DRUGS (4)
  1. REVATIO [Concomitant]
  2. OXYGEN [Concomitant]
  3. COUMADIN [Concomitant]
  4. TRACLEER [Suspect]
     Indication: PULMONARY ARTERIAL HYPERTENSION
     Dosage: 62.5 MG, BID
     Route: 048
     Dates: start: 20120113, end: 20120320

REACTIONS (7)
  - OEDEMA PERIPHERAL [None]
  - DYSPNOEA [None]
  - PULMONARY EMBOLISM [None]
  - FALL [None]
  - OXYGEN SATURATION DECREASED [None]
  - FLUID RETENTION [None]
  - LIVER DISORDER [None]
